FAERS Safety Report 5143113-1 (Version None)
Quarter: 2006Q4

REPORT INFORMATION
  Report Type: 
  Country: None (occurrence: None)
  Receive Date: 20061031
  Receipt Date: 20061031
  Transmission Date: 20070319
  Serious: Yes (Other)
  Sender: FDA-Public Use
  Company Number: None

PATIENT
  Age: 69 Year
  Sex: Male

DRUGS (3)
  1. REVLIMID [Suspect]
     Indication: MYELODYSPLASTIC SYNDROME
     Dosage: 10MG    EVERY OTHER DAY   PO
     Route: 048
     Dates: start: 20060724, end: 20061027
  2. NASARL [Concomitant]
  3. DOXYCYCLINE [Concomitant]

REACTIONS (1)
  - NEUTROPHIL COUNT DECREASED [None]
